FAERS Safety Report 20333030 (Version 1)
Quarter: 2022Q1

REPORT INFORMATION
  Report Type: Spontaneous
  Country: ES (occurrence: ES)
  Receive Date: 20220113
  Receipt Date: 20220113
  Transmission Date: 20220423
  Serious: Yes (Other)
  Sender: FDA-Public Use
  Company Number: ES-PFIZER INC-202101886111

PATIENT
  Age: 73 Year
  Sex: Female

DRUGS (10)
  1. TIGECYCLINE [Suspect]
     Active Substance: TIGECYCLINE
     Indication: Infection
     Dosage: 100 MG
  2. TIGECYCLINE [Suspect]
     Active Substance: TIGECYCLINE
     Dosage: 50 MG, 2X/DAY(EVERY 12H)
  3. CLINDAMYCIN PHOSPHATE [Suspect]
     Active Substance: CLINDAMYCIN PHOSPHATE
     Indication: Infection
     Dosage: 600 MG, 3X/DAY (EVERY 8H)
  4. REMIFENTANIL [Concomitant]
     Active Substance: REMIFENTANIL
  5. PROPOFOL [Concomitant]
     Active Substance: PROPOFOL
  6. DEXMEDETOMIDINE [Concomitant]
     Active Substance: DEXMEDETOMIDINE
  7. NOREPINEPHRINE [Concomitant]
     Active Substance: NOREPINEPHRINE
  8. VITAMIN K [Concomitant]
     Active Substance: PHYTONADIONE
  9. OMEPRAZOLE [Concomitant]
     Active Substance: OMEPRAZOLE
  10. ACETAMINOPHEN [Concomitant]
     Active Substance: ACETAMINOPHEN

REACTIONS (8)
  - Azotaemia [Recovering/Resolving]
  - Metabolic acidosis [Recovering/Resolving]
  - Mean arterial pressure decreased [Unknown]
  - Urine protein/creatinine ratio abnormal [Unknown]
  - Blood urea increased [Recovering/Resolving]
  - Blood creatinine increased [Recovering/Resolving]
  - Hyperphosphataemia [Unknown]
  - Myopathy [Unknown]
